FAERS Safety Report 8951369 (Version 1)
Quarter: 2012Q4

REPORT INFORMATION
  Report Type: Spontaneous
  Country: GB (occurrence: None)
  Receive Date: 20121129
  Receipt Date: 20121129
  Transmission Date: 20130627
  Serious: Yes (Hospitalization)
  Sender: FDA-Public Use
  Company Number: GB-DEXPHARM-20121616

PATIENT

DRUGS (1)
  1. OMEGAVEN [Suspect]
     Route: 042

REACTIONS (1)
  - Blood triglycerides increased [None]
